FAERS Safety Report 16860477 (Version 1)
Quarter: 2019Q3

REPORT INFORMATION
  Report Type: Spontaneous
  Country: ES (occurrence: ES)
  Receive Date: 20190927
  Receipt Date: 20190927
  Transmission Date: 20191005
  Serious: Yes (Other)
  Sender: FDA-Public Use
  Company Number: ES-MYLANLABS-2019M1089643

PATIENT
  Age: 68 Year
  Sex: Male
  Weight: 69.5 kg

DRUGS (2)
  1. EFAVIRENZ. [Suspect]
     Active Substance: EFAVIRENZ
     Indication: HIV INFECTION
     Dosage: 800 MILLIGRAM, QD
     Route: 065
     Dates: start: 200809, end: 200905
  2. EFAVIRENZ/EMTRICITABINE/TENOFOVIR DISOPROXIL FUMARATE [Suspect]
     Active Substance: EFAVIRENZ\EMTRICITABINE\TENOFOVIR DISOPROXIL FUMARATE
     Indication: HIV INFECTION
     Dosage: UNK
     Route: 065
     Dates: start: 200805, end: 200905

REACTIONS (1)
  - Pulmonary tuberculosis [Unknown]

NARRATIVE: CASE EVENT DATE: 200809
